FAERS Safety Report 8515231-9 (Version None)
Quarter: 2012Q3

REPORT INFORMATION
  Report Type: 
  Country: None (occurrence: None)
  Receive Date: 20120717
  Receipt Date: 20120702
  Transmission Date: 20120928
  Serious: Yes (Hospitalization, Other)
  Sender: FDA-Public Use
  Company Number: US-ARROW-2012-11918

PATIENT
  Age: 49 Year
  Sex: Male
  Weight: 62.7 kg

DRUGS (1)
  1. LEVETIRACETAM [Suspect]
     Indication: SUICIDE ATTEMPT
     Dosage: 22500 MG, SINGLE
     Route: 048

REACTIONS (3)
  - ANXIETY [None]
  - WITHDRAWAL SYNDROME [None]
  - INTENTIONAL OVERDOSE [None]
